FAERS Safety Report 24444812 (Version 2)
Quarter: 2024Q4

REPORT INFORMATION
  Report Type: Report from Study
  Country: US (occurrence: US)
  Receive Date: 20241016
  Receipt Date: 20241017
  Transmission Date: 20250114
  Serious: No
  Sender: ROCHE
  Company Number: US-ROCHE-3000198

PATIENT
  Age: 31 Year
  Sex: Male

DRUGS (24)
  1. RITUXAN [Suspect]
     Active Substance: RITUXIMAB
     Indication: Encephalitis
     Dosage: INFUSE 1000MG ON DAY 0 AND DAY 14, THEN EVERY 6 MONTHS?10 MG/ML? FREQUENCY TEXT:DAY 0 AND 14 THEN EV
     Route: 065
  2. RITUXAN [Suspect]
     Active Substance: RITUXIMAB
     Indication: Encephalomyelitis
  3. LEVETIRACETAM [Concomitant]
     Active Substance: LEVETIRACETAM
     Indication: Product used for unknown indication
  4. ROZEREM [Concomitant]
     Active Substance: RAMELTEON
     Indication: Product used for unknown indication
  5. ALBUTEROL [Concomitant]
     Active Substance: ALBUTEROL
  6. ALENDRONATE [Concomitant]
     Active Substance: ALENDRONATE SODIUM
  7. CALCIUM\CHOLECALCIFEROL [Concomitant]
     Active Substance: CALCIUM\CHOLECALCIFEROL
     Dosage: 500 MG - 200 UNIT PER TABLET
  8. CLOBAZAM [Concomitant]
     Active Substance: CLOBAZAM
  9. DEXTROAMPHETAMINE [Concomitant]
     Active Substance: DEXTROAMPHETAMINE
  10. LACOSAMIDE [Concomitant]
     Active Substance: LACOSAMIDE
  11. MELATONIN [Concomitant]
     Active Substance: MELATONIN
  12. MESALAMINE [Concomitant]
     Active Substance: MESALAMINE
  13. METHYLPHENIDATE HYDROCHLORIDE [Concomitant]
     Active Substance: METHYLPHENIDATE HYDROCHLORIDE
  14. METHYLPHENIDATE HYDROCHLORIDE [Concomitant]
     Active Substance: METHYLPHENIDATE HYDROCHLORIDE
  15. MIDAZOLAM [Concomitant]
     Active Substance: MIDAZOLAM
     Dosage: 5MG/SPRAY (0.1 ML)
  16. PANTOPRAZOLE [Concomitant]
     Active Substance: PANTOPRAZOLE
  17. PITOLISANT [Concomitant]
     Active Substance: PITOLISANT
  18. PREDNISONE [Concomitant]
     Active Substance: PREDNISONE
  19. SERTRALINE [Concomitant]
     Active Substance: SERTRALINE HYDROCHLORIDE
  20. SULFAMETHOXAZOLE [Concomitant]
     Active Substance: SULFAMETHOXAZOLE
  21. TRIMETHOPRIM [Concomitant]
     Active Substance: TRIMETHOPRIM
  22. VALACYCLOVIR [Concomitant]
     Active Substance: VALACYCLOVIR HYDROCHLORIDE
  23. VEDOLIZUMAB [Concomitant]
     Active Substance: VEDOLIZUMAB
  24. ZONISAMIDE [Concomitant]
     Active Substance: ZONISAMIDE

REACTIONS (2)
  - Off label use [Unknown]
  - No adverse event [Unknown]
